FAERS Safety Report 17395215 (Version 1)
Quarter: 2020Q1

REPORT INFORMATION
  Report Type: Spontaneous
  Country: US (occurrence: US)
  Receive Date: 20200210
  Receipt Date: 20200210
  Transmission Date: 20200409
  Serious: No
  Sender: FDA-Public Use
  Company Number: US-BAYER-2020-023266

PATIENT
  Age: 83 Year
  Sex: Female

DRUGS (4)
  1. MIRALAX [Suspect]
     Active Substance: POLYETHYLENE GLYCOL 3350
     Indication: INTESTINAL OBSTRUCTION
     Dosage: 28 G
     Route: 048
     Dates: start: 20200204, end: 20200207
  2. MIRALAX [Suspect]
     Active Substance: POLYETHYLENE GLYCOL 3350
     Indication: GASTROINTESTINAL DISORDER
     Dosage: 199 G
     Route: 048
     Dates: start: 20200203, end: 20200203
  3. DIGOXIN. [Concomitant]
     Active Substance: DIGOXIN
  4. PREVENTOL [Concomitant]

REACTIONS (3)
  - Drug ineffective for unapproved indication [Unknown]
  - Adverse event [Unknown]
  - Pain [Unknown]

NARRATIVE: CASE EVENT DATE: 202002
